FAERS Safety Report 24887964 (Version 2)
Quarter: 2025Q2

REPORT INFORMATION
  Report Type: Spontaneous
  Country: CA (occurrence: CA)
  Receive Date: 20250127
  Receipt Date: 20250627
  Transmission Date: 20250717
  Serious: Yes (Other)
  Sender: CELLTRION
  Company Number: CA-CELLTRION INC.-2024CA027546

PATIENT

DRUGS (1)
  1. STEQEYMA [Suspect]
     Active Substance: USTEKINUMAB-STBA
     Indication: Crohn^s disease
     Route: 058

REACTIONS (4)
  - Limb injury [Recovered/Resolved]
  - Abdominal pain upper [Recovered/Resolved]
  - Flatulence [Recovered/Resolved]
  - Off label use [Recovered/Resolved]
